FAERS Safety Report 16072662 (Version 3)
Quarter: 2019Q3

REPORT INFORMATION
  Report Type: Report from Study
  Country: US (occurrence: US)
  Receive Date: 20190314
  Receipt Date: 20190822
  Transmission Date: 20191004
  Serious: Yes (Other)
  Sender: FDA-Public Use
  Company Number: US-ROCHE-2282130

PATIENT
  Age: 75 Year
  Sex: Female
  Weight: 90.8 kg

DRUGS (8)
  1. OCREVUS [Suspect]
     Active Substance: OCRELIZUMAB
     Dosage: 2ND HALF DOSE
     Route: 042
     Dates: start: 20190227
  2. LISINOPRIL. [Concomitant]
     Active Substance: LISINOPRIL
  3. OCREVUS [Suspect]
     Active Substance: OCRELIZUMAB
     Indication: PRIMARY PROGRESSIVE MULTIPLE SCLEROSIS
     Dosage: FIRST HALF DOSE
     Route: 042
     Dates: start: 20190207
  4. NUVIGIL [Concomitant]
     Active Substance: ARMODAFINIL
     Route: 065
  5. OCREVUS [Suspect]
     Active Substance: OCRELIZUMAB
     Route: 042
     Dates: start: 20190204
  6. VITAMIN D3 [Concomitant]
     Active Substance: CHOLECALCIFEROL
  7. LEXAPRO [Concomitant]
     Active Substance: ESCITALOPRAM OXALATE
  8. VALIUM [Suspect]
     Active Substance: DIAZEPAM
     Indication: FEELING OF RELAXATION
     Route: 065

REACTIONS (7)
  - Cough [Recovered/Resolved]
  - Bronchitis [Recovered/Resolved]
  - Road traffic accident [Unknown]
  - Urticaria [Recovered/Resolved]
  - Rhinorrhoea [Recovered/Resolved]
  - Sleep disorder [Recovered/Resolved]
  - Pruritus [Recovered/Resolved]

NARRATIVE: CASE EVENT DATE: 20190226
